FAERS Safety Report 7617433-2 (Version None)
Quarter: 2011Q3

REPORT INFORMATION
  Report Type: 
  Country: None (occurrence: None)
  Receive Date: 20110718
  Receipt Date: 20110713
  Transmission Date: 20111222
  Serious: No
  Sender: FDA-Public Use
  Company Number: US-PFIZER INC-2011159298

PATIENT
  Sex: Female
  Weight: 38.549 kg

DRUGS (4)
  1. ZARONTIN [Suspect]
     Dosage: 750 MG, DAILY
     Route: 048
     Dates: start: 20110710
  2. MULTI-VITAMINS [Concomitant]
     Dosage: DAILY
  3. ZARONTIN [Suspect]
     Indication: PETIT MAL EPILEPSY
     Dosage: 250 MG, DAILY
     Route: 048
     Dates: start: 20110704, end: 20110701
  4. ZARONTIN [Suspect]
     Dosage: 500 MG, DAILY
     Route: 048
     Dates: start: 20110701, end: 20110710

REACTIONS (2)
  - DIZZINESS [None]
  - ABDOMINAL PAIN UPPER [None]
